FAERS Safety Report 18527297 (Version 2)
Quarter: 2020Q4

REPORT INFORMATION
  Report Type: Spontaneous
  Country: CH (occurrence: CH)
  Receive Date: 20201120
  Receipt Date: 20201216
  Transmission Date: 20210114
  Serious: Yes (Hospitalization, Other)
  Sender: FDA-Public Use
  Company Number: CH-PFIZER INC-2020456711

PATIENT
  Age: 85 Year
  Sex: Female
  Weight: 55 kg

DRUGS (12)
  1. REDORMIN [HUMULUS LUPULUS HOPS;VALERIANA OFFICINALIS ROOT] [Concomitant]
     Active Substance: HERBALS\HOPS\VALERIAN
     Dosage: UNK
  2. CONCOR [Concomitant]
     Active Substance: BISOPROLOL FUMARATE
     Dosage: UNK
  3. PANTOZOL [Concomitant]
     Active Substance: PANTOPRAZOLE SODIUM
     Dosage: UNK
  4. TOREM [TORASEMIDE] [Concomitant]
     Active Substance: TORSEMIDE
     Dosage: UNK
  5. REMERON [Suspect]
     Active Substance: MIRTAZAPINE
     Dosage: 30 MG
     Route: 048
  6. ELIQUIS [Concomitant]
     Active Substance: APIXABAN
     Dosage: UNK
  7. RELAXANE [Concomitant]
     Dosage: UNK
  8. SEQUASE [Suspect]
     Active Substance: QUETIAPINE FUMARATE
     Dosage: 50 MG
     Route: 048
  9. QUILONORM [LITHIUM CARBONATE] [Concomitant]
     Active Substance: LITHIUM CARBONATE
     Dosage: UNK
  10. TEMESTA (LORAZEPAM) [Suspect]
     Active Substance: LORAZEPAM
     Dosage: 0.5 MG, 4X/DAY POSSIBLY ADDITIONALLY IF NECESSARY
     Route: 048
  11. CYMBALTA [Suspect]
     Active Substance: DULOXETINE HYDROCHLORIDE
     Dosage: 60 MG
     Route: 048
  12. OLANZAPIN MEPHA [Concomitant]
     Active Substance: OLANZAPINE
     Dosage: UNK

REACTIONS (5)
  - Fall [Recovered/Resolved]
  - Loss of consciousness [Unknown]
  - Dizziness [Unknown]
  - Muscular weakness [Recovered/Resolved]
  - Vertigo [Recovered/Resolved]

NARRATIVE: CASE EVENT DATE: 20200910
